FAERS Safety Report 10651588 (Version 2)
Quarter: 2014Q4

REPORT INFORMATION
  Report Type: Spontaneous
  Country: US (occurrence: US)
  Receive Date: 20141215
  Receipt Date: 20141217
  Transmission Date: 20150529
  Serious: No
  Sender: FDA-Public Use
  Company Number: US-BAYER-2014-178533

PATIENT
  Age: 51 Year
  Sex: Female

DRUGS (3)
  1. ADEMPAS [Suspect]
     Active Substance: RIOCIGUAT
     Indication: PRODUCT USED FOR UNKNOWN INDICATION
     Dosage: 1.5 MG, UNK
     Route: 065
  2. LETAIRIS [Suspect]
     Active Substance: AMBRISENTAN
     Indication: PRODUCT USED FOR UNKNOWN INDICATION
     Dosage: 10 MG, QD
     Route: 065
     Dates: start: 20120229
  3. TYVASO [Concomitant]
     Active Substance: TREPROSTINIL
     Dosage: UNK
     Route: 065

REACTIONS (4)
  - Abdominal discomfort [None]
  - Abdominal distension [None]
  - Abdominal pain upper [None]
  - Diarrhoea [None]
